FAERS Safety Report 8543648-5 (Version None)
Quarter: 2012Q3

REPORT INFORMATION
  Report Type: 
  Country: None (occurrence: None)
  Receive Date: 20120727
  Receipt Date: 20120716
  Transmission Date: 20120928
  Serious: Yes (Hospitalization, Other)
  Sender: FDA-Public Use
  Company Number: ES-PFIZER INC-2008152967

PATIENT
  Age: 39 Year
  Sex: Male

DRUGS (3)
  1. METHOTREXATE SODIUM [Suspect]
     Indication: ACUTE LYMPHOCYTIC LEUKAEMIA
     Dosage: HIGH DOSE, 3 G/M2
     Route: 042
  2. LEUCOVORIN CALCIUM [Concomitant]
     Route: 042
  3. GEMFIBROZIL [Interacting]
     Indication: HYPERLIPIDAEMIA
     Dosage: UNKNOWN
     Route: 065

REACTIONS (4)
  - RENAL FAILURE ACUTE [None]
  - DRUG INTERACTION [None]
  - MUCOSAL INFLAMMATION [None]
  - DRUG CLEARANCE DECREASED [None]
